FAERS Safety Report 7717631-3 (Version None)
Quarter: 2011Q3

REPORT INFORMATION
  Report Type: 
  Country: None (occurrence: None)
  Receive Date: 20110830
  Receipt Date: 20110830
  Transmission Date: 20111222
  Serious: Yes (Other)
  Sender: FDA-Public Use
  Company Number: None

PATIENT
  Age: 75 Year
  Sex: Female
  Weight: 113.39 kg

DRUGS (1)
  1. KENALOG [Suspect]
     Indication: INTRAOCULAR PRESSURE INCREASED
     Dosage: UNKNOWN
     Dates: start: 20100828, end: 20100828

REACTIONS (7)
  - ACTIVITIES OF DAILY LIVING IMPAIRED [None]
  - HYPERSENSITIVITY [None]
  - INTRAOCULAR PRESSURE INCREASED [None]
  - OPTIC NERVE DISORDER [None]
  - IMPAIRED DRIVING ABILITY [None]
  - CONDITION AGGRAVATED [None]
  - BLINDNESS UNILATERAL [None]
